FAERS Safety Report 8180390-7 (Version None)
Quarter: 2012Q1

REPORT INFORMATION
  Report Type: 
  Country: None (occurrence: None)
  Receive Date: 20120302
  Receipt Date: 20110804
  Transmission Date: 20120608
  Serious: No
  Sender: FDA-Public Use
  Company Number: US-COVIDIEN/TYCO HEALTHCARE/MALLINCKRODT-T201101550

PATIENT
  Sex: Female

DRUGS (6)
  1. SENOKOT [Concomitant]
     Indication: CONSTIPATION
     Dosage: UNK, QD
  2. RESTORIL [Suspect]
     Indication: INSOMNIA
     Dosage: 15 MG QHS, ONE DOSE
     Dates: start: 20110803, end: 20110804
  3. POTASSIUM CHLORIDE [Concomitant]
     Indication: SUPPLEMENTATION THERAPY
     Dosage: 3 TIMES WEEKLY
  4. SYNTHROID [Concomitant]
     Indication: THYROID DISORDER
     Dosage: UNK, QD
     Route: 048
  5. HYDROCHLOROTHIAZIDE [Concomitant]
     Indication: HYPERTENSION
     Dosage: UNK, QD
     Route: 048
  6. XANAX [Concomitant]
     Dosage: 0.5 UNK, Q HS
     Route: 048
     Dates: start: 20060101

REACTIONS (3)
  - DRUG INTERACTION [None]
  - CONSTIPATION [None]
  - DRUG INEFFECTIVE [None]
